FAERS Safety Report 6523850-4 (Version None)
Quarter: 2009Q4

REPORT INFORMATION
  Report Type: 
  Country: None (occurrence: None)
  Receive Date: 20091228
  Receipt Date: 20091228
  Transmission Date: 20100525
  Serious: Yes (Hospitalization)
  Sender: FDA-Public Use
  Company Number: None

PATIENT

DRUGS (2)
  1. EPINEPHRINE [Suspect]
     Indication: ANAPHYLACTIC REACTION
     Dosage: 1MG/ML; SQ/IM; EMERGENCY
     Route: 030
     Dates: start: 20091101
  2. EPINEPHRINE [Suspect]
     Indication: HYPERSENSITIVITY
     Dosage: 1MG/ML; SQ/IM; EMERGENCY
     Route: 030
     Dates: start: 20091101

REACTIONS (2)
  - DEVICE BREAKAGE [None]
  - PRODUCT PACKAGING QUANTITY ISSUE [None]
